FAERS Safety Report 7134662-5 (Version None)
Quarter: 2010Q4

REPORT INFORMATION
  Report Type: 
  Country: None (occurrence: None)
  Receive Date: 20101203
  Receipt Date: 20101129
  Transmission Date: 20110411
  Serious: Yes (Other)
  Sender: FDA-Public Use
  Company Number: JP-B.I. PHARMACEUTICALS,INC./RIDGEFIELD-2010-BP-13398NB

PATIENT
  Age: 84 Year
  Sex: Female

DRUGS (4)
  1. MICOMBI COMBINATION [Suspect]
     Indication: HYPERTENSION
     Dosage: TELMISARTAN 40 MG/HYDROCHLOROTHIAZIDE 12.5 MG
     Route: 048
     Dates: start: 20101021, end: 20101108
  2. ATELEC [Concomitant]
     Indication: HYPERTENSION
     Dosage: 1DF
     Route: 048
     Dates: start: 20100305
  3. MICARDIS [Concomitant]
     Indication: HYPERTENSION
     Route: 048
     Dates: start: 20100305, end: 20101021
  4. MICARDIS [Concomitant]
     Dosage: 40 MG
     Route: 048
     Dates: start: 20101108

REACTIONS (4)
  - HYPERURICAEMIA [None]
  - LOSS OF CONSCIOUSNESS [None]
  - MALAISE [None]
  - RENAL FAILURE [None]
